FAERS Safety Report 10080378 (Version 4)
Quarter: 2015Q1

REPORT INFORMATION
  Report Type: Report from Study
  Country: JP (occurrence: JP)
  Receive Date: 20140415
  Receipt Date: 20150203
  Transmission Date: 20150720
  Serious: Yes (Hospitalization)
  Sender: FDA-Public Use
  Company Number: JP-BRISTOL-MYERS SQUIBB COMPANY-20192191

PATIENT
  Age: 77 Year
  Sex: Male
  Weight: 57 kg

DRUGS (12)
  1. APIXABAN [Suspect]
     Active Substance: APIXABAN
     Dosage: 2.5 MG, BID
     Route: 048
     Dates: start: 20141123, end: 20141211
  2. MARZULENE-S [Concomitant]
     Active Substance: SODIUM GUALENATE
     Indication: CHRONIC GASTRITIS
     Dosage: GRA
     Route: 048
  3. ADALAT [Concomitant]
     Active Substance: NIFEDIPINE
     Indication: HYPERTENSION
     Dosage: TAB
     Route: 048
  4. MAGMITT [Concomitant]
     Active Substance: MAGNESIUM OXIDE
     Indication: CONSTIPATION
     Dosage: TAB
     Route: 048
  5. VESICARE [Concomitant]
     Active Substance: SOLIFENACIN SUCCINATE
     Indication: HYPERTONIC BLADDER
     Dosage: 2.5 MG, QD
     Route: 048
     Dates: end: 20140213
  6. TOVIAZ [Concomitant]
     Active Substance: FESOTERODINE FUMARATE
     Indication: HYPERTONIC BLADDER
     Dosage: 4 MG, QD
     Route: 048
     Dates: start: 20140213
  7. APIXABAN [Suspect]
     Active Substance: APIXABAN
     Dosage: 2.5 MG, BID
     Route: 048
     Dates: start: 20141219
  8. BLOPRESS [Concomitant]
     Active Substance: CANDESARTAN CILEXETIL
     Indication: HYPERTENSION
     Dosage: TAB
     Route: 048
  9. BROTIZOLAM [Concomitant]
     Active Substance: BROTIZOLAM
     Indication: INSOMNIA
     Dosage: .25 MG, QD
     Route: 048
  10. APIXABAN [Suspect]
     Active Substance: APIXABAN
     Indication: PRODUCT USED FOR UNKNOWN INDICATION
     Dosage: 2.5 MG, BID
     Route: 048
     Dates: end: 20140406
  11. APIXABAN [Suspect]
     Active Substance: APIXABAN
     Dosage: 2.5 MG, BID
     Route: 048
     Dates: start: 20140415, end: 20141116
  12. MAINTATE [Concomitant]
     Active Substance: BISOPROLOL FUMARATE
     Indication: VENTRICULAR EXTRASYSTOLES
     Dosage: .625 MG, QD
     Route: 048

REACTIONS (3)
  - Haematuria [Recovering/Resolving]
  - Haemoptysis [Recovered/Resolved]
  - Bladder cancer [Recovering/Resolving]

NARRATIVE: CASE EVENT DATE: 20140118
